FAERS Safety Report 12952634 (Version 3)
Quarter: 2017Q1

REPORT INFORMATION
  Report Type: Report from Study
  Country: US (occurrence: US)
  Receive Date: 20161117
  Receipt Date: 20170127
  Transmission Date: 20170428
  Serious: Yes (Death, Hospitalization)
  Sender: FDA-Public Use
  Company Number: US-CELGENEUS-USA-2016111894

PATIENT
  Age: 64 Year
  Sex: Female
  Weight: 75.5 kg

DRUGS (2)
  1. REVLIMID [Suspect]
     Active Substance: LENALIDOMIDE
     Indication: PLASMA CELL MYELOMA
     Dosage: 25 MILLIGRAM
     Route: 048
     Dates: start: 20160118, end: 20160605
  2. KYPROLIS [Suspect]
     Active Substance: CARFILZOMIB
     Indication: PLASMA CELL MYELOMA
     Dosage: 34 MILLIGRAM
     Route: 041
     Dates: start: 20160803, end: 20160804

REACTIONS (5)
  - Hepatic encephalopathy [Recovered/Resolved]
  - Malignant ascites [Not Recovered/Not Resolved]
  - Metabolic encephalopathy [Recovered/Resolved]
  - Death [Fatal]
  - Subdural haematoma [Not Recovered/Not Resolved]

NARRATIVE: CASE EVENT DATE: 20160606
